FAERS Safety Report 6415053-9 (Version None)
Quarter: 2009Q4

REPORT INFORMATION
  Report Type: 
  Country: None (occurrence: None)
  Receive Date: 20091021
  Receipt Date: 20091007
  Transmission Date: 20100525
  Serious: Yes (Death)
  Sender: FDA-Public Use
  Company Number: 8053195

PATIENT
  Sex: Male

DRUGS (3)
  1. KEPPRA [Suspect]
     Indication: EPILEPSY
     Dosage: 250 MG /D TRP
     Route: 064
     Dates: start: 20080923, end: 20091009
  2. KEPPRA [Suspect]
     Indication: EPILEPSY
     Dosage: 750 MG /D TRP
     Route: 064
     Dates: start: 20081010
  3. KEPPRA [Suspect]
     Indication: EPILEPSY
     Dosage: 3000 MG /D TRP
     Route: 058
     Dates: start: 20090201

REACTIONS (4)
  - CARDIOMEGALY [None]
  - FOETAL GROWTH RETARDATION [None]
  - MATERNAL DRUGS AFFECTING FOETUS [None]
  - STILLBIRTH [None]
